FAERS Safety Report 5593966-8 (Version None)
Quarter: 2008Q1

REPORT INFORMATION
  Report Type: 
  Country: None (occurrence: None)
  Receive Date: 20080114
  Receipt Date: 20071228
  Transmission Date: 20080703
  Serious: Yes (Hospitalization)
  Sender: FDA-Public Use
  Company Number: 2007JP005803

PATIENT
  Age: 28 Year
  Sex: Male

DRUGS (3)
  1. TACROLIMUS [Suspect]
     Indication: DERMATITIS ATOPIC
     Dosage: 0.1 %, TOPICAL; 0.1 %, TOPICAL; 0.1 %, TOPICAL
     Route: 061
  2. RISPERIDONE [Suspect]
     Indication: SCHIZOPHRENIA, PARANOID TYPE
     Dosage: 5 MG, /D; 3 MG, /D; 3 MG, /D
  3. HALOPERIDOL [Concomitant]

REACTIONS (19)
  - ABNORMAL BEHAVIOUR [None]
  - DELUSION [None]
  - DERMATITIS ATOPIC [None]
  - DRUG INEFFECTIVE [None]
  - HALLUCINATION, AUDITORY [None]
  - INSOMNIA [None]
  - INTENTIONAL SELF-INJURY [None]
  - IRRITABILITY [None]
  - MENTAL IMPAIRMENT [None]
  - MOOD ALTERED [None]
  - MUSCLE RIGIDITY [None]
  - PERSECUTORY DELUSION [None]
  - PSYCHOMOTOR RETARDATION [None]
  - RETINAL DETACHMENT [None]
  - SCHIZOPHRENIA [None]
  - SKIN ULCER [None]
  - SOMNOLENCE [None]
  - THINKING ABNORMAL [None]
  - TREATMENT NONCOMPLIANCE [None]
